FAERS Safety Report 11139787 (Version 1)
Quarter: 2015Q2

REPORT INFORMATION
  Report Type: Spontaneous
  Country: US (occurrence: None)
  Receive Date: 20150526
  Receipt Date: 20150526
  Transmission Date: 20150821
  Serious: Yes (Other)
  Sender: FDA-Public Use
  Company Number: None

PATIENT
  Age: 56 Year
  Sex: Male
  Weight: 83.92 kg

DRUGS (4)
  1. LIPITOR [Concomitant]
     Active Substance: ATORVASTATIN CALCIUM
  2. INSULIN [Concomitant]
     Active Substance: INSULIN NOS
  3. DAILY MULTI VITAMIN [Concomitant]
  4. TERBINAFINE 250MG [Suspect]
     Active Substance: TERBINAFINE
     Indication: ONYCHOMYCOSIS
     Dosage: 1 PILL
     Route: 048
     Dates: start: 20150328, end: 20150423

REACTIONS (1)
  - Ageusia [None]

NARRATIVE: CASE EVENT DATE: 20150424
